FAERS Safety Report 4766669-7 (Version None)
Quarter: 2005Q3

REPORT INFORMATION
  Report Type: 
  Country: None (occurrence: None)
  Receive Date: 20050909
  Receipt Date: 20050829
  Transmission Date: 20060218
  Serious: Yes (Death)
  Sender: FDA-Public Use
  Company Number: 05-08-1494

PATIENT
  Age: 52 Year
  Sex: Male

DRUGS (1)
  1. CLOZAPINE [Suspect]
     Indication: SCHIZOAFFECTIVE DISORDER
     Dosage: 200-500 MG QD, ORAL
     Route: 048
     Dates: start: 20000901, end: 20050701

REACTIONS (1)
  - HEAT EXPOSURE INJURY [None]
